FAERS Safety Report 5642181-8 (Version None)
Quarter: 2008Q1

REPORT INFORMATION
  Report Type: 
  Country: None (occurrence: None)
  Receive Date: 20080225
  Receipt Date: 20080211
  Transmission Date: 20080703
  Serious: No
  Sender: FDA-Public Use
  Company Number: US022210

PATIENT
  Age: 49 Year
  Sex: Female
  Weight: 58.9676 kg

DRUGS (7)
  1. PROVIGIL [Suspect]
     Indication: NARCOLEPSY
     Dosage: 600 MG QD ORAL
     Route: 048
     Dates: start: 20071101
  2. TRAZODONE HCL [Concomitant]
  3. FLUOXETINE [Concomitant]
  4. LEVOTHYROXINE SODIUM [Concomitant]
  5. ADVAIR DISKUS 100/50 [Concomitant]
  6. NASONEX [Concomitant]
  7. FEXOFENADINE [Concomitant]

REACTIONS (4)
  - EYE IRRITATION [None]
  - HERPES VIRUS INFECTION [None]
  - INFLUENZA LIKE ILLNESS [None]
  - STAPHYLOCOCCAL INFECTION [None]
